FAERS Safety Report 4512279-6 (Version None)
Quarter: 2004Q4

REPORT INFORMATION
  Report Type: 
  Country: None (occurrence: None)
  Receive Date: 20041129
  Receipt Date: 20020618
  Transmission Date: 20050328
  Serious: Yes (Hospitalization)
  Sender: FDA-Public Use
  Company Number: FR-GLAXOSMITHKLINE-B0271466A

PATIENT
  Age: 44 Year
  Sex: Male
  Weight: 69 kg

DRUGS (5)
  1. ZIAGEN [Suspect]
     Indication: HIV INFECTION
     Route: 048
     Dates: start: 20010427, end: 20020222
  2. VIDEX [Suspect]
     Indication: HIV INFECTION
     Route: 048
     Dates: start: 20010427, end: 20020222
  3. KALETRA [Suspect]
     Indication: HIV INFECTION
     Route: 048
     Dates: start: 20010629, end: 20020222
  4. VALCYTE [Concomitant]
     Indication: HIV INFECTION
     Route: 065
  5. SANDOSTATIN [Concomitant]
     Indication: ILL-DEFINED DISORDER
     Route: 065

REACTIONS (2)
  - DIARRHOEA [None]
  - OSTEONECROSIS [None]
